FAERS Safety Report 17010576 (Version 3)
Quarter: 2021Q3

REPORT INFORMATION
  Report Type: Spontaneous
  Country: US (occurrence: US)
  Receive Date: 20191108
  Receipt Date: 20210810
  Transmission Date: 20211014
  Serious: Yes (Other)
  Sender: FDA-Public Use
  Company Number: US-ASTRAZENECA-2019SF55913

PATIENT
  Age: 28261 Day
  Sex: Female
  Weight: 77.1 kg

DRUGS (15)
  1. FUROSEMIDE. [Concomitant]
     Active Substance: FUROSEMIDE
     Indication: DIURETIC THERAPY
     Dates: start: 2012, end: 2020
  2. COLACE [Concomitant]
     Active Substance: DOCUSATE SODIUM
     Dosage: PRESCRIPTION
     Dates: start: 2013, end: 2019
  3. ACETAMINOPHEN. [Concomitant]
     Active Substance: ACETAMINOPHEN
     Indication: ANALGESIC THERAPY
     Dates: start: 2012
  4. POTASSIUM CHLORIDE. [Concomitant]
     Active Substance: POTASSIUM CHLORIDE
     Dosage: PRESCRIPTION
     Dates: start: 2013, end: 2019
  5. PRILOSEC [Suspect]
     Active Substance: OMEPRAZOLE MAGNESIUM
     Indication: GASTROOESOPHAGEAL REFLUX DISEASE
     Dosage: GENERIC
     Route: 065
     Dates: start: 2013
  6. PRILOSEC [Suspect]
     Active Substance: OMEPRAZOLE MAGNESIUM
     Indication: GASTROOESOPHAGEAL REFLUX DISEASE
     Route: 048
     Dates: start: 1989, end: 2014
  7. ATORVASTATIN [Concomitant]
     Active Substance: ATORVASTATIN
     Indication: BLOOD CHOLESTEROL ABNORMAL
     Dates: start: 2015, end: 2019
  8. VITAMIN D3 [Concomitant]
     Active Substance: CHOLECALCIFEROL
     Dosage: PRESCRIPTION
     Dates: start: 2013, end: 2019
  9. VITAMIN B12 [Concomitant]
     Active Substance: CYANOCOBALAMIN
     Dosage: PRESCRIPTION
     Dates: start: 2013, end: 2019
  10. PRILOSEC [Suspect]
     Active Substance: OMEPRAZOLE MAGNESIUM
     Indication: GASTROOESOPHAGEAL REFLUX DISEASE
     Route: 048
     Dates: start: 198901, end: 201401
  11. FAMOTIDINE. [Concomitant]
     Active Substance: FAMOTIDINE
     Dosage: PRESCRIPTION
     Dates: start: 2013, end: 2019
  12. FOLIC ACID. [Concomitant]
     Active Substance: FOLIC ACID
     Dosage: PRESCRIPTION
     Dates: start: 2013, end: 2019
  13. HYDRALAZINE [Concomitant]
     Active Substance: HYDRALAZINE HYDROCHLORIDE
     Indication: BLOOD PRESSURE ABNORMAL
     Dates: start: 2013, end: 2019
  14. CARTIA [Concomitant]
     Dosage: PRESCRIPTION
     Dates: start: 2013, end: 2019
  15. MULTIVITAMIN [Concomitant]
     Active Substance: VITAMINS
     Dosage: PRESCRIPTION
     Dates: start: 2013, end: 2019

REACTIONS (2)
  - Renal failure [Unknown]
  - Chronic kidney disease [Not Recovered/Not Resolved]

NARRATIVE: CASE EVENT DATE: 20160425
